FAERS Safety Report 4885492-6 (Version None)
Quarter: 2005Q4

REPORT INFORMATION
  Report Type: 
  Country: None (occurrence: None)
  Receive Date: 20051220
  Receipt Date: 20050817
  Transmission Date: 20060501
  Serious: Yes (Life-Threatening, Hospitalization, Other)
  Sender: FDA-Public Use
  Company Number: HQWYE012418AUG05

PATIENT
  Age: 18 Year
  Sex: Female
  Weight: 54.48 kg

DRUGS (2)
  1. EFFEXOR XR [Suspect]
     Indication: DEPRESSION
     Dosage: 7.5 GRAMS (ESTIMATED OVERDOSE AMOUNT), ORAL
     Route: 048
     Dates: start: 20050817, end: 20050817
  2. WELLBUTRIN XL [Suspect]
     Indication: DEPRESSION
     Dosage: 3 GRAMS (ESTIMATED OVERDOSE AMOUNT), ORAL
     Route: 048
     Dates: start: 20050817, end: 20050817

REACTIONS (4)
  - GRAND MAL CONVULSION [None]
  - INTENTIONAL OVERDOSE [None]
  - SUICIDE ATTEMPT [None]
  - TACHYCARDIA [None]
